FAERS Safety Report 8214066-4 (Version None)
Quarter: 2012Q1

REPORT INFORMATION
  Report Type: 
  Country: None (occurrence: None)
  Receive Date: 20120316
  Receipt Date: 20120313
  Transmission Date: 20120608
  Serious: Yes (Hospitalization)
  Sender: FDA-Public Use
  Company Number: US-TEVA-274382USA

PATIENT
  Sex: Male

DRUGS (5)
  1. ASPIRIN [Concomitant]
  2. ALDACTAZIDE-A [Suspect]
     Indication: HYPERTENSION
  3. SAXAGLIPTIN/PLACEBO [Suspect]
     Indication: TYPE 2 DIABETES MELLITUS
     Dates: start: 20100915, end: 20110408
  4. CARVEDILOL [Suspect]
     Indication: HYPERTENSION
  5. METFORMIN HCL [Suspect]
     Indication: TYPE 2 DIABETES MELLITUS
     Dates: end: 20110211

REACTIONS (1)
  - RENAL FAILURE ACUTE [None]
